FAERS Safety Report 9187149 (Version 3)
Quarter: 2013Q2

REPORT INFORMATION
  Report Type: Spontaneous
  Country: DK (occurrence: FR)
  Receive Date: 20130325
  Receipt Date: 20130607
  Transmission Date: 20140414
  Serious: Yes (Hospitalization)
  Sender: FDA-Public Use
  Company Number: FR-FRI-1000043685

PATIENT
  Age: 68 Year
  Sex: Male

DRUGS (10)
  1. ESCITALOPRAM [Suspect]
     Dosage: 10 MG
     Route: 048
     Dates: start: 20130207, end: 20130213
  2. CLAMOXYL [Suspect]
     Indication: HELICOBACTER INFECTION
     Dosage: 2 GRAM
     Route: 048
     Dates: start: 20130206, end: 20130216
  3. ZECLAR [Suspect]
     Indication: HELICOBACTER INFECTION
     Dosage: 1000 MG
     Route: 048
     Dates: start: 20130206, end: 20130216
  4. CALCIPARINE [Concomitant]
     Dosage: 0.4 ML
     Route: 050
     Dates: start: 20130129, end: 20130222
  5. PARACETAMOL MACOPHARMA [Concomitant]
     Dosage: 0.25 GRAM
     Route: 050
     Dates: start: 20130209, end: 20130213
  6. INSPRA [Concomitant]
     Dosage: 25 MG
     Route: 048
     Dates: start: 20130202, end: 20130222
  7. CRESTOR [Concomitant]
     Dosage: 5 MG
     Route: 048
     Dates: start: 20130125, end: 20130222
  8. PLAVIX [Concomitant]
     Dosage: 75 MG
     Route: 048
     Dates: start: 20130204, end: 20130213
  9. KARDEGIC [Concomitant]
     Dosage: 75 MG
     Route: 048
     Dates: start: 20130213, end: 20130222
  10. INEXIUM [Concomitant]
     Dosage: 40 MG
     Route: 048
     Dates: start: 20130128, end: 20130227

REACTIONS (2)
  - Thrombocytopenia [Recovered/Resolved]
  - Neutropenia [Recovered/Resolved]
